FAERS Safety Report 6134155-8 (Version None)
Quarter: 2009Q1

REPORT INFORMATION
  Report Type: 
  Country: None (occurrence: None)
  Receive Date: 20090326
  Receipt Date: 20090323
  Transmission Date: 20090719
  Serious: Yes (Other)
  Sender: FDA-Public Use
  Company Number: US-SANOFI-SYNTHELABO-A03200901245

PATIENT
  Age: 26 Year
  Sex: Male
  Weight: 81.6 kg

DRUGS (2)
  1. TRAMADOL HCL [Concomitant]
     Indication: MIGRAINE
     Dosage: UNK
     Route: 065
  2. AMBIEN [Suspect]
     Indication: INSOMNIA
     Route: 048
     Dates: start: 20071201, end: 20081204

REACTIONS (5)
  - AMNESIA [None]
  - DRUG LEVEL ABOVE THERAPEUTIC [None]
  - IMPAIRED DRIVING ABILITY [None]
  - IMPRISONMENT [None]
  - SOMNAMBULISM [None]
